FAERS Safety Report 4357240-X (Version None)
Quarter: 2004Q2

REPORT INFORMATION
  Report Type: 
  Country: None (occurrence: None)
  Receive Date: 20040507
  Receipt Date: 20040419
  Transmission Date: 20050107
  Serious: Yes (Other)
  Sender: FDA-Public Use
  Company Number: USA040465239

PATIENT
  Age: 78 Year
  Sex: Female
  Weight: 52 kg

DRUGS (10)
  1. FORTEO [Suspect]
     Indication: OSTEOPOROSIS
     Dosage: 20 UG/1 DAY
     Dates: start: 20040304
  2. VITAMIN B PLUS [Concomitant]
  3. FOLIC ACID [Concomitant]
  4. MULTI-VITAMIN [Concomitant]
  5. TIAZAC [Concomitant]
  6. HUMIBID (GUAIFENESIN) [Concomitant]
  7. MEGACE [Concomitant]
  8. PRAVACHOL [Concomitant]
  9. VITAMIN C [Concomitant]
  10. PROCRIT (ERYTHROPOIETIN) [Concomitant]

REACTIONS (6)
  - BACK PAIN [None]
  - CHEST INJURY [None]
  - DYSSTASIA [None]
  - FEELING COLD [None]
  - PHARMACEUTICAL PRODUCT COMPLAINT [None]
  - STERNAL FRACTURE [None]
